FAERS Safety Report 4598693-1 (Version None)
Quarter: 2005Q1

REPORT INFORMATION
  Report Type: 
  Country: None (occurrence: None)
  Receive Date: 20050304
  Receipt Date: 20050222
  Transmission Date: 20050727
  Serious: Yes (Other)
  Sender: FDA-Public Use
  Company Number: PHHO2005JP03234

PATIENT
  Age: 79 Year
  Sex: Male

DRUGS (4)
  1. DIOVAN [Suspect]
     Dosage: 40 MG, QD
     Route: 048
     Dates: start: 20030225, end: 20050205
  2. AMLODIN [Concomitant]
     Dates: start: 20020611
  3. BASEN [Concomitant]
     Dates: start: 20020611
  4. AMARYL [Concomitant]
     Dates: start: 20020611

REACTIONS (1)
  - DIABETIC NEPHROPATHY [None]
